FAERS Safety Report 8950698 (Version 1)
Quarter: 2012Q4

REPORT INFORMATION
  Report Type: Spontaneous
  Country: BR (occurrence: None)
  Receive Date: 20121128
  Receipt Date: 20121128
  Transmission Date: 20130627
  Serious: Yes (Hospitalization)
  Sender: FDA-Public Use
  Company Number: DSU-2012-09235

PATIENT
  Age: 33 Year
  Sex: Female

DRUGS (4)
  1. OLMETEC HCT [Suspect]
     Indication: HYPERTENSION
     Route: 048
     Dates: start: 20120618
  2. CARVEDILAT (CARVEDILOL) [Concomitant]
  3. FLUOXETINE (FLUOXETINE) [Concomitant]
  4. MESACOL (MESALAZINE) [Concomitant]

REACTIONS (2)
  - Gastrointestinal disorder [None]
  - Blood pressure fluctuation [None]
